FAERS Safety Report 5851493-4 (Version None)
Quarter: 2008Q3

REPORT INFORMATION
  Report Type: 
  Country: None (occurrence: None)
  Receive Date: 20080818
  Receipt Date: 20080818
  Transmission Date: 20090109
  Serious: Yes (Disabling)
  Sender: FDA-Public Use
  Company Number: None

PATIENT
  Age: 67 Year
  Sex: Female
  Weight: 56.6996 kg

DRUGS (1)
  1. LIPITOR [Suspect]
     Dosage: 10 MG X 1 ORAL
     Route: 048
     Dates: start: 19600101, end: 19670101

REACTIONS (3)
  - HYPOAESTHESIA [None]
  - SENSATION OF HEAVINESS [None]
  - TREMOR [None]
